FAERS Safety Report 11202116 (Version 1)
Quarter: 2015Q2

REPORT INFORMATION
  Report Type: Report from Study
  Country: CA (occurrence: CA)
  Receive Date: 20150619
  Receipt Date: 20150619
  Transmission Date: 20150821
  Serious: Yes (Hospitalization, Other)
  Sender: FDA-Public Use
  Company Number: PHHY2014CA079720

PATIENT
  Age: 58 Year
  Sex: Female

DRUGS (2)
  1. SANDOSTATIN [Suspect]
     Active Substance: OCTREOTIDE ACETATE
     Indication: NEUROENDOCRINE CARCINOMA
     Dosage: 100 UG, ONCE/SINGLE
     Route: 058
     Dates: start: 20140620, end: 20140620
  2. SANDOSTATIN LAR DEPOT [Suspect]
     Active Substance: OCTREOTIDE ACETATE
     Indication: NEUROENDOCRINE TUMOUR
     Dosage: 30 MG, EVERY 4 WEEKS
     Route: 030
     Dates: start: 20140702

REACTIONS (10)
  - Abdominal pain [Recovered/Resolved]
  - Intestinal obstruction [Recovered/Resolved]
  - Blood pressure increased [Unknown]
  - Cholelithiasis [Unknown]
  - Cholecystitis [Unknown]
  - Gallbladder oedema [Unknown]
  - Injection site pain [Unknown]
  - Pyelonephritis [Unknown]
  - Inflammation [Recovered/Resolved]
  - Blood pressure systolic increased [Unknown]

NARRATIVE: CASE EVENT DATE: 20140620
